FAERS Safety Report 9779647 (Version 1)
Quarter: 2013Q4

REPORT INFORMATION
  Report Type: Spontaneous
  Country: US (occurrence: US)
  Receive Date: 20131223
  Receipt Date: 20131223
  Transmission Date: 20140711
  Serious: No
  Sender: FDA-Public Use
  Company Number: US-PFIZER INC-2013362098

PATIENT
  Age: 71 Year
  Sex: Female
  Weight: 52.15 kg

DRUGS (6)
  1. XELJANZ [Suspect]
     Indication: RHEUMATOID ARTHRITIS
     Dosage: 5 MG, 2X/DAY
     Route: 048
     Dates: start: 201308
  2. ORENCIA [Suspect]
     Indication: RHEUMATOID ARTHRITIS
     Dosage: UNK, MONTHLY
     Dates: start: 2008, end: 201307
  3. AMLODIPINE [Concomitant]
     Indication: HYPERTENSION
     Dosage: 5 MG, DAILY
  4. TRAMADOL [Concomitant]
     Indication: ARTHRALGIA
     Dosage: 50 MG, 3X/DAY
  5. TRAZODONE [Concomitant]
     Indication: SLEEP DISORDER
     Dosage: 50 MG, DAILY
  6. METHOTREXATE [Concomitant]
     Indication: RHEUMATOID ARTHRITIS
     Dosage: 2.5 MG, DAILY

REACTIONS (6)
  - Drug ineffective [Unknown]
  - Abdominal pain upper [Recovering/Resolving]
  - Headache [Recovering/Resolving]
  - Infection [Recovering/Resolving]
  - Condition aggravated [Recovering/Resolving]
  - Mood swings [Recovering/Resolving]
